FAERS Safety Report 6825263-4 (Version None)
Quarter: 2010Q3

REPORT INFORMATION
  Report Type: 
  Country: None (occurrence: None)
  Receive Date: 20100708
  Receipt Date: 20061121
  Transmission Date: 20110219
  Serious: No
  Sender: FDA-Public Use
  Company Number: US-PFIZER INC-2006147676

PATIENT
  Sex: Male
  Weight: 86.64 kg

DRUGS (3)
  1. CHANTIX [Suspect]
     Indication: SMOKING CESSATION THERAPY
     Route: 048
     Dates: start: 20060101
  2. LIPITOR [Concomitant]
     Route: 048
  3. PROTONIX [Concomitant]
     Route: 048

REACTIONS (6)
  - EMOTIONAL DISTRESS [None]
  - FATIGUE [None]
  - FLATULENCE [None]
  - MOOD ALTERED [None]
  - NAUSEA [None]
  - SLEEP DISORDER [None]
